FAERS Safety Report 14389850 (Version 3)
Quarter: 2018Q1

REPORT INFORMATION
  Report Type: Report from Study
  Country: DE (occurrence: DE)
  Receive Date: 20180115
  Receipt Date: 20180219
  Transmission Date: 20180509
  Serious: Yes (Hospitalization)
  Sender: FDA-Public Use
  Company Number: DE-UCBSA-2018001120

PATIENT
  Age: 46 Year
  Sex: Male
  Weight: 54 kg

DRUGS (22)
  1. BRIVARACETAM [Suspect]
     Active Substance: BRIVARACETAM
     Dosage: 20 MG, 2X/DAY (BID)
     Dates: start: 20160413, end: 20160416
  2. BRIVARACETAM [Suspect]
     Active Substance: BRIVARACETAM
     Dosage: 25 MG / 50 MG
     Dates: start: 20160426, end: 20160503
  3. BRIVARACETAM [Suspect]
     Active Substance: BRIVARACETAM
     Dosage: 50 MG, 2X/DAY (BID)
     Dates: start: 20160504, end: 20160913
  4. PHENYTOIN. [Concomitant]
     Active Substance: PHENYTOIN
     Dosage: 100 MG, ONCE DAILY (QD)
     Dates: start: 20160315
  5. BRIVARACETAM [Suspect]
     Active Substance: BRIVARACETAM
     Indication: EPILEPSY
     Dosage: 10 MG, ONCE DAILY (QD)
     Dates: start: 20160401, end: 20160402
  6. BRIVARACETAM [Suspect]
     Active Substance: BRIVARACETAM
     Dosage: 10 MG, 2X/DAY (BID)
     Dates: start: 20160402, end: 20160405
  7. LAMOTRIGINE. [Concomitant]
     Active Substance: LAMOTRIGINE
     Dosage: 100 MG, 2X/DAY (BID)
     Dates: start: 20160315
  8. PHENYTOIN. [Concomitant]
     Active Substance: PHENYTOIN
     Dosage: 50 MG, 2X/DAY (BID)
     Dates: end: 20160314
  9. VITAMIN B12 [Concomitant]
     Active Substance: CYANOCOBALAMIN
     Indication: PRODUCT USED FOR UNKNOWN INDICATION
     Dosage: 1000 MG, ONCE DAILY (QD)
  10. PHENYTOIN. [Concomitant]
     Active Substance: PHENYTOIN
     Dosage: 200 MG, ONCE DAILY (QD)
     Dates: start: 20160315
  11. BRIVARACETAM [Suspect]
     Active Substance: BRIVARACETAM
     Dosage: 25 MG, 2X/DAY (BID)
     Dates: start: 20160416, end: 20160426
  12. BRIVARACETAM [Suspect]
     Active Substance: BRIVARACETAM
     Dosage: 100 MG, 2X/DAY (BID)
     Dates: start: 20160913
  13. LAMOTRIGINE. [Concomitant]
     Active Substance: LAMOTRIGINE
     Indication: EPILEPSY
     Dosage: 200 MG, 3X/DAY (TID)
  14. PHENYTOIN. [Concomitant]
     Active Substance: PHENYTOIN
     Indication: EPILEPSY
     Dosage: 100 MG, 2X/DAY (BID)
     Dates: end: 20160314
  15. BRIVARACETAM [Suspect]
     Active Substance: BRIVARACETAM
     Dosage: 20 MG/10 MG
     Dates: start: 20160405, end: 20160412
  16. LAMOTRIGINE. [Concomitant]
     Active Substance: LAMOTRIGINE
     Dosage: 100 MG, 3X/DAY (TID)
     Dates: end: 20160514
  17. PHENOBARBITAL. [Concomitant]
     Active Substance: PHENOBARBITAL
     Indication: EPILEPSY
     Dosage: 50 MG, 2X/DAY (BID)
     Dates: end: 20160314
  18. LAMOTRIGINE. [Concomitant]
     Active Substance: LAMOTRIGINE
     Dosage: 50 MG, ONCE DAILY (QD)
  19. PHENYTOIN. [Concomitant]
     Active Substance: PHENYTOIN
     Dosage: 50 MG, ONCE DAILY (QD)
     Dates: start: 20160315
  20. TERBINAFIN [Concomitant]
     Active Substance: TERBINAFINE
     Indication: PRODUCT USED FOR UNKNOWN INDICATION
     Dosage: 250 MG, WEEKLY (QW) (ONCE A WEEK)
  21. PHENOBARBITAL. [Concomitant]
     Active Substance: PHENOBARBITAL
     Dosage: 25 MG, 2X/DAY (BID)
     Dates: start: 20160315
  22. FOLSAEURE [Concomitant]
     Active Substance: FOLIC ACID
     Indication: PRODUCT USED FOR UNKNOWN INDICATION
     Dosage: 5 MG, ONCE DAILY (QD)

REACTIONS (1)
  - Status epilepticus [Recovered/Resolved]

NARRATIVE: CASE EVENT DATE: 20160914
